FAERS Safety Report 9373730 (Version 1)
Quarter: 2013Q2

REPORT INFORMATION
  Report Type: Spontaneous
  Country: ES (occurrence: ES)
  Receive Date: 20130627
  Receipt Date: 20130627
  Transmission Date: 20140414
  Serious: No
  Sender: FDA-Public Use
  Company Number: ES-009507513-1306ESP010045

PATIENT
  Sex: Female

DRUGS (1)
  1. SYCREST [Suspect]
     Dosage: 5 MG, QD
     Route: 048
     Dates: start: 2013, end: 2013

REACTIONS (1)
  - Rash [Recovered/Resolved]
